FAERS Safety Report 8266350-6 (Version None)
Quarter: 2012Q2

REPORT INFORMATION
  Report Type: 
  Country: None (occurrence: None)
  Receive Date: 20120406
  Receipt Date: 20120328
  Transmission Date: 20120825
  Serious: Yes (Congenital Anomaly)
  Sender: FDA-Public Use
  Company Number: US-FRI-1000029169

PATIENT
  Sex: Male
  Weight: 3.1 kg

DRUGS (4)
  1. NATACHEW [Concomitant]
  2. ESGIC-PLUS [Concomitant]
  3. PROZAC [Concomitant]
  4. LEXAPRO [Suspect]
     Route: 064

REACTIONS (2)
  - TRANSPOSITION OF THE GREAT VESSELS [None]
  - PYLORIC STENOSIS [None]
